FAERS Safety Report 20697924 (Version 3)
Quarter: 2024Q1

REPORT INFORMATION
  Report Type: Spontaneous
  Country: PL (occurrence: PL)
  Receive Date: 20220412
  Receipt Date: 20240315
  Transmission Date: 20240409
  Serious: Yes (Hospitalization, Disabling, Other)
  Sender: FDA-Public Use
  Company Number: PL-TopRidge-C2022TR000140

PATIENT
  Age: 83 Year
  Sex: Female
  Weight: 91 kg

DRUGS (54)
  1. PROLIA [Suspect]
     Active Substance: DENOSUMAB
     Indication: Product used for unknown indication
     Dosage: 60 MILLIGRAM
     Route: 065
  2. ZOLPIDEM [Suspect]
     Active Substance: ZOLPIDEM TARTRATE
     Indication: Product used for unknown indication
     Dosage: 10 MILLIGRAM, QD
     Route: 065
  3. HYDROXYZINE HYDROCHLORIDE [Suspect]
     Active Substance: HYDROXYZINE HYDROCHLORIDE
     Indication: Product used for unknown indication
     Dosage: USUALLY 2 PER 24 HOUR, AS NECESSARY
     Route: 065
  4. ZOLPIDEM [Suspect]
     Active Substance: ZOLPIDEM TARTRATE
     Indication: Product used for unknown indication
     Dosage: UNK
     Route: 065
  5. OMEPRAZOLE [Suspect]
     Active Substance: OMEPRAZOLE
     Indication: Product used for unknown indication
     Dosage: 40 MILLIGRAM, QD (20 MG BID)
     Route: 048
  6. OMEPRAZOLE [Suspect]
     Active Substance: OMEPRAZOLE
     Dosage: 100 MILLIGRAM, BID
     Route: 065
  7. POTASSIUM CHLORIDE [Suspect]
     Active Substance: POTASSIUM CHLORIDE
     Indication: Product used for unknown indication
     Dosage: 1 DF EVERY 2 DAYS/391 MG POTASSIUM
     Route: 065
  8. BETAHISTINE [Suspect]
     Active Substance: BETAHISTINE
     Indication: Product used for unknown indication
     Dosage: UNK, QD
     Route: 065
  9. BETAHISTINE [Suspect]
     Active Substance: BETAHISTINE
     Dosage: 24 MILLIGRAM, QD
     Route: 065
  10. DABIGATRAN [Suspect]
     Active Substance: DABIGATRAN
     Indication: Product used for unknown indication
     Dosage: 220 MILLIGRAM, QD (100 MG BID)
     Route: 065
  11. LEVOTHYROXINE [Suspect]
     Active Substance: LEVOTHYROXINE\LEVOTHYROXINE SODIUM
     Indication: Product used for unknown indication
     Dosage: 100 MICROGRAM, QD
     Route: 065
  12. CHOLECALCIFEROL [Suspect]
     Active Substance: CHOLECALCIFEROL
     Indication: Product used for unknown indication
     Dosage: 1 DOSAGE FORM, QD
     Route: 065
  13. BENSERAZIDE\LEVODOPA [Suspect]
     Active Substance: BENSERAZIDE\LEVODOPA
     Indication: Product used for unknown indication
     Dosage: 63 MILLIGRAM
     Route: 065
  14. DONEPEZIL [Suspect]
     Active Substance: DONEPEZIL
     Indication: Product used for unknown indication
     Dosage: 5 MILLIGRAM
     Route: 065
  15. POTASSIUM CHLORIDE [Suspect]
     Active Substance: POTASSIUM CHLORIDE
     Indication: Product used for unknown indication
     Dosage: 1 DOSAGE FORM, TABLET (391 POTASSIUM) EVERY 2 DAYS
     Route: 065
  16. ALPRAZOLAM [Suspect]
     Active Substance: ALPRAZOLAM
     Indication: Product used for unknown indication
     Dosage: 2 DOSAGE FORM, QD (5 MG USUALLY)
     Route: 065
  17. RAMIPRIL [Suspect]
     Active Substance: RAMIPRIL
     Indication: Cardiac failure
     Dosage: 5 MILLIGRAM, QD
     Route: 065
  18. ALLOPURINOL [Suspect]
     Active Substance: ALLOPURINOL
     Indication: Product used for unknown indication
     Dosage: 100 MILLIGRAM, QD
     Route: 065
  19. ATORVASTATIN [Suspect]
     Active Substance: ATORVASTATIN
     Indication: Product used for unknown indication
     Dosage: 20 MILLIGRAM, QD
     Route: 065
  20. BETAHISTINE HYDROCHLORIDE [Suspect]
     Active Substance: BETAHISTINE HYDROCHLORIDE
     Indication: Product used for unknown indication
     Dosage: 24 MILLIGRAM, QD
     Route: 065
  21. DEXTROSE\NIKETHAMIDE [Suspect]
     Active Substance: DEXTROSE\NIKETHAMIDE
     Indication: Product used for unknown indication
     Dosage: UNK, 1.5 + 125 MG
     Route: 065
  22. DEXTROSE\NIKETHAMIDE [Suspect]
     Active Substance: DEXTROSE\NIKETHAMIDE
     Dosage: UNK
     Route: 065
  23. ISOSORBIDE MONONITRATE [Suspect]
     Active Substance: ISOSORBIDE MONONITRATE
     Indication: Coronary artery disease
     Dosage: 50 MILLIGRAM, AS NECESSARY
     Route: 065
  24. ISOSORBIDE MONONITRATE [Suspect]
     Active Substance: ISOSORBIDE MONONITRATE
     Dosage: 60 MILLIGRAM, QD
     Route: 048
  25. TRAMADOL [Suspect]
     Active Substance: TRAMADOL\TRAMADOL HYDROCHLORIDE
     Indication: Pain
     Dosage: 50 MILLIGRAM, IN CASE OF PAIN
     Route: 065
  26. TRAMADOL [Suspect]
     Active Substance: TRAMADOL\TRAMADOL HYDROCHLORIDE
     Dosage: 100 MILLIGRAM, AS NECESSARY
     Route: 065
  27. TRAMADOL [Suspect]
     Active Substance: TRAMADOL\TRAMADOL HYDROCHLORIDE
     Dosage: 2 DOSAGE FORM
     Route: 065
  28. HYDROCHLOROTHIAZIDE [Suspect]
     Active Substance: HYDROCHLOROTHIAZIDE
     Indication: Product used for unknown indication
     Dosage: 25 MILLIGRAM, QD
     Route: 065
  29. LEVOTHYROXINE SODIUM [Suspect]
     Active Substance: LEVOTHYROXINE SODIUM
     Indication: Product used for unknown indication
     Dosage: 100 MICROGRAM, QD
     Route: 065
  30. SPIRONOLACTONE [Suspect]
     Active Substance: SPIRONOLACTONE
     Indication: Product used for unknown indication
     Dosage: 100 MILLIGRAM, QD
     Route: 065
  31. METOPROLOL [Suspect]
     Active Substance: METOPROLOL
     Indication: Hypertension
     Dosage: 100 MILLIGRAM, QD (50 MG BID)
     Route: 065
  32. METOPROLOL [Suspect]
     Active Substance: METOPROLOL
     Dosage: UNK
     Route: 065
  33. HYDROXYZINE [Suspect]
     Active Substance: HYDROXYZINE HYDROCHLORIDE
     Indication: Product used for unknown indication
     Dosage: 40 MILLIGRAM
     Route: 065
  34. METOCLOPRAMIDE [Suspect]
     Active Substance: METOCLOPRAMIDE
     Indication: Constipation
     Dosage: 10 MILLIGRAM, 2 TABLETS AS NEEDED, IN CASE OF CONSTIPATION, BUT FOR MANY MONTHS
     Route: 065
  35. NIKETHAMIDE [Suspect]
     Active Substance: NIKETHAMIDE
     Indication: Product used for unknown indication
     Dosage: 125 MILLIGRAM, INTERMITTENTLY
     Route: 065
  36. GLICLAZIDE [Suspect]
     Active Substance: GLICLAZIDE
     Indication: Product used for unknown indication
     Dosage: 180 MILLIGRAM, QD (60 MG TID)
     Route: 065
  37. HYDROXYZINE [Suspect]
     Active Substance: HYDROXYZINE HYDROCHLORIDE
     Indication: Product used for unknown indication
     Dosage: 25 MILLIGRAM, AS NECESSARY
     Route: 065
  38. POTASSIUM CHLORIDE [Suspect]
     Active Substance: POTASSIUM CHLORIDE
     Indication: Product used for unknown indication
     Dosage: 2 DOSAGE FORMS DAILY; 1 TABLET (391 K PLUS) EVERY 2 DAYS (1 DOSAGE FORMS,1 IN 2 D)
     Route: 065
  39. FUROSEMIDE [Suspect]
     Active Substance: FUROSEMIDE
     Indication: Product used for unknown indication
     Dosage: 120 MILLIGRAM (40 MILLIGRAM, 3 TABLETS EVERY 2 DAYS)
     Route: 065
  40. ATORVASTATIN CALCIUM [Suspect]
     Active Substance: ATORVASTATIN CALCIUM
     Indication: Product used for unknown indication
     Dosage: 1 DOSAGE FORM, QD
     Route: 065
  41. ACETAMINOPHEN [Suspect]
     Active Substance: ACETAMINOPHEN
     Indication: Product used for unknown indication
     Dosage: 1000 MILLIGRAM, QD (500 MG BID)
     Route: 065
  42. ACETAMINOPHEN [Suspect]
     Active Substance: ACETAMINOPHEN
     Dosage: 500 MILLIGRAM, QD
     Route: 065
  43. ALBUTEROL [Suspect]
     Active Substance: ALBUTEROL
     Indication: Product used for unknown indication
     Dosage: 100 MICROGRAM, AS NECESSARY
     Route: 065
  44. CITALOPRAM [Suspect]
     Active Substance: CITALOPRAM HYDROBROMIDE
     Indication: Depression
     Dosage: 40 MILLIGRAM, QD
     Route: 065
  45. METFORMIN [Concomitant]
     Active Substance: METFORMIN HYDROCHLORIDE
     Indication: Type 2 diabetes mellitus
     Dosage: UNK
  46. RUFLOXACIN [Concomitant]
     Active Substance: RUFLOXACIN
     Indication: Nasopharyngitis
     Dosage: 2 DOSAGE FORM, QD
     Route: 048
  47. VORTIOXETINE [Concomitant]
     Active Substance: VORTIOXETINE
     Indication: Product used for unknown indication
     Dosage: 10 MILLIGRAM, QD
  48. TORSEMIDE [Concomitant]
     Active Substance: TORSEMIDE
     Indication: Product used for unknown indication
     Dosage: 5 MILLIGRAM, QD
  49. HYDROTALCITE [Concomitant]
     Active Substance: HYDROTALCITE
     Indication: Abdominal pain upper
     Dosage: 1 DOSAGE FORM (TABLET), QD
     Route: 065
  50. INSULIN NOS [Concomitant]
     Active Substance: INSULIN NOS
     Indication: Blood glucose abnormal
     Dosage: UNK UNK, QD
     Route: 065
  51. ACARBOSE [Concomitant]
     Active Substance: ACARBOSE
     Indication: Hyperglycaemia
     Dosage: 3 DOSAGE FORM, QD
     Route: 048
  52. QUETIAPINE [Concomitant]
     Active Substance: QUETIAPINE
     Indication: Product used for unknown indication
     Dosage: 25 MILLIGRAM, QD
  53. LAN DI [Concomitant]
     Indication: Hypertension
     Dosage: 1 DOSAGE FORM, QD (AMLODIPINE BESILATE: 50.0MG )
     Route: 048
  54. HYDROXYZINE HYDROCHLORIDE [Concomitant]
     Active Substance: HYDROXYZINE HYDROCHLORIDE
     Indication: Product used for unknown indication
     Dosage: UNK

REACTIONS (58)
  - Bradykinesia [Unknown]
  - Hyponatraemia [Unknown]
  - Drug interaction [Unknown]
  - Melaena [Unknown]
  - Nausea [Unknown]
  - Fall [Recovering/Resolving]
  - Neuroglycopenia [Unknown]
  - Hypotension [Recovering/Resolving]
  - Peripheral circulatory failure [Unknown]
  - Blood pressure decreased [Unknown]
  - Stupor [Unknown]
  - Cognitive disorder [Unknown]
  - Muscle rigidity [Unknown]
  - Urinary retention [Unknown]
  - Sedation [Recovering/Resolving]
  - Dysuria [Unknown]
  - Multiple drug therapy [Unknown]
  - Motor dysfunction [Recovering/Resolving]
  - Hypoglycaemia [Recovered/Resolved]
  - Syncope [Recovering/Resolving]
  - Abdominal pain upper [Unknown]
  - Dizziness [Recovering/Resolving]
  - Osteoporosis [Unknown]
  - Labelled drug-drug interaction issue [Recovered/Resolved]
  - Mobility decreased [Recovering/Resolving]
  - Pruritus [Unknown]
  - Gastric polyps [Unknown]
  - Drug ineffective [Unknown]
  - Coronary artery disease [Unknown]
  - Deep vein thrombosis [Unknown]
  - Pancreatitis acute [Unknown]
  - Micturition disorder [Unknown]
  - Gastrointestinal disorder [Unknown]
  - Hyperkalaemia [Unknown]
  - Peptic ulcer [Unknown]
  - Autoimmune thyroiditis [Unknown]
  - Constipation [Unknown]
  - Dementia [Unknown]
  - Drug dependence [Unknown]
  - Type 2 diabetes mellitus [Unknown]
  - Diabetes mellitus inadequate control [Unknown]
  - Parkinsonism [Unknown]
  - Chronic kidney disease [Unknown]
  - Initial insomnia [Unknown]
  - Incorrect product administration duration [Unknown]
  - Blood potassium increased [Unknown]
  - Cardiac failure [Unknown]
  - Arthralgia [Unknown]
  - Blood cholesterol decreased [Unknown]
  - Insomnia [Unknown]
  - Hyperglycaemia [Unknown]
  - Abdominal pain upper [Unknown]
  - Blood urea increased [Unknown]
  - Femur fracture [Unknown]
  - Atrial fibrillation [Unknown]
  - Hiatus hernia [Unknown]
  - Medication error [Unknown]
  - Atrioventricular block first degree [Recovering/Resolving]

NARRATIVE: CASE EVENT DATE: 20210101
